FAERS Safety Report 8478000-4 (Version None)
Quarter: 2012Q2

REPORT INFORMATION
  Report Type: 
  Country: None (occurrence: None)
  Receive Date: 20120629
  Receipt Date: 20120618
  Transmission Date: 20120825
  Serious: Yes (Hospitalization, Other)
  Sender: FDA-Public Use
  Company Number: TR-VALEANT-2012VX002775

PATIENT
  Age: 18 Month
  Sex: Male
  Weight: 12 kg

DRUGS (9)
  1. PROPOFOL [Concomitant]
     Route: 065
  2. ADRENALIN IN OIL INJ [Concomitant]
     Route: 042
  3. NEOSTIGMINE BROMIDE [Suspect]
     Route: 042
  4. FENTANYL CITRATE [Concomitant]
     Route: 065
  5. ATROPINE [Suspect]
     Indication: NEUROMUSCULAR BLOCKADE REVERSAL
     Route: 042
  6. ROCURONIUM BROMIDE [Concomitant]
     Route: 040
  7. MIDAZOLAM [Concomitant]
     Route: 065
  8. LIDOCAINE [Concomitant]
     Route: 065
  9. SEVOFLURANE [Concomitant]
     Route: 065

REACTIONS (2)
  - CARDIAC ARREST [None]
  - BRADYCARDIA [None]
